FAERS Safety Report 18451760 (Version 1)
Quarter: 2020Q4

REPORT INFORMATION
  Report Type: Spontaneous
  Country: US (occurrence: US)
  Receive Date: 20201030
  Receipt Date: 20201030
  Transmission Date: 20210114
  Serious: Yes (Life-Threatening)
  Sender: FDA-Public Use
  Company Number: None

PATIENT
  Age: 68 Year
  Sex: Male
  Weight: 109.6 kg

DRUGS (4)
  1. NC TREK CORONARY DILATION CATHETER [Concomitant]
     Dates: end: 20201026
  2. HEPARIN [Suspect]
     Active Substance: HEPARIN SODIUM
  3. VERAPAMIL [Suspect]
     Active Substance: VERAPAMIL HYDROCHLORIDE
  4. NC TREK CORONARY DILATION CATHETER [Suspect]
     Active Substance: DEVICE
     Indication: CATHETERISATION CARDIAC

REACTIONS (5)
  - Device breakage [None]
  - Air embolism [None]
  - Cardiac arrest [None]
  - Pulseless electrical activity [None]
  - Chest discomfort [None]

NARRATIVE: CASE EVENT DATE: 20201026
